FAERS Safety Report 8936077 (Version 1)
Quarter: 2012Q4

REPORT INFORMATION
  Report Type: 
  Country: BE (occurrence: BE)
  Receive Date: 20121130
  Receipt Date: 20121130
  Transmission Date: 20130627
  Serious: Yes (Hospitalization)
  Sender: FDA-Public Use
  Company Number: BE-AMGEN-BELSP2012067094

PATIENT
  Age: 73 Year
  Sex: Male

DRUGS (7)
  1. VECTIBIX [Suspect]
     Indication: COLORECTAL CANCER METASTATIC
     Dosage: UNK UNK, q2wk
     Route: 042
     Dates: start: 20120604
  2. METFORMIN [Concomitant]
     Dosage: UNK
     Route: 048
  3. URSOCHOL [Concomitant]
     Dosage: UNK
     Route: 048
  4. RISPERDAL [Concomitant]
     Indication: PSYCHOTIC DISORDER
     Dosage: UNK
     Route: 048
  5. MIRTAZAPINE [Concomitant]
     Indication: PSYCHOTIC DISORDER
     Dosage: UNK
     Route: 048
  6. NEBIVOLOL [Concomitant]
     Indication: HYPERTENSION
     Dosage: UNK
     Route: 048
  7. LERCANIDIPINE [Concomitant]
     Indication: HYPERTENSION
     Dosage: UNK
     Route: 048

REACTIONS (3)
  - Hypocalcaemia [Not Recovered/Not Resolved]
  - Hypomagnesaemia [Not Recovered/Not Resolved]
  - Nail bed inflammation [Recovering/Resolving]
